FAERS Safety Report 22298743 (Version 2)
Quarter: 2023Q2

REPORT INFORMATION
  Report Type: Spontaneous
  Country: US (occurrence: None)
  Receive Date: 20230509
  Receipt Date: 20230607
  Transmission Date: 20230722
  Serious: No
  Sender: FDA-Public Use
  Company Number: 2023A101659

PATIENT
  Age: 74 Year
  Sex: Female
  Weight: 96.2 kg

DRUGS (1)
  1. TEZSPIRE [Suspect]
     Active Substance: TEZEPELUMAB-EKKO
     Indication: Asthma
     Dates: start: 20220914

REACTIONS (1)
  - Eosinophilic pleural effusion [Unknown]

NARRATIVE: CASE EVENT DATE: 20230426
